FAERS Safety Report 14435618 (Version 1)
Quarter: 2018Q1

REPORT INFORMATION
  Report Type: Spontaneous
  Country: US (occurrence: US)
  Receive Date: 20180125
  Receipt Date: 20180125
  Transmission Date: 20180509
  Serious: No
  Sender: FDA-Public Use
  Company Number: US-UNITED THERAPEUTICS-UNT-2017-012537

PATIENT
  Sex: Male

DRUGS (1)
  1. REMODULIN [Suspect]
     Active Substance: TREPROSTINIL
     Indication: PRODUCT USED FOR UNKNOWN INDICATION
     Dosage: 0.060 ?G/KG, CONTINUING
     Route: 041
     Dates: start: 20120726

REACTIONS (3)
  - Pain in jaw [Unknown]
  - Diarrhoea [Unknown]
  - Pain in extremity [Unknown]
